FAERS Safety Report 7204797-7 (Version None)
Quarter: 2010Q4

REPORT INFORMATION
  Report Type: 
  Country: None (occurrence: None)
  Receive Date: 20101217
  Receipt Date: 20101203
  Transmission Date: 20110411
  Serious: Yes (Hospitalization)
  Sender: FDA-Public Use
  Company Number: 2010S1001027

PATIENT
  Age: 60 Year
  Sex: Female

DRUGS (2)
  1. LIVALO [Suspect]
     Indication: CARDIOVASCULAR DISORDER
     Dosage: 2 MG;1X;PO
     Route: 048
     Dates: start: 20080527
  2. LIVALO [Suspect]
     Indication: HYPERLIPIDAEMIA
     Dosage: 2 MG;1X;PO
     Route: 048
     Dates: start: 20080527

REACTIONS (2)
  - ABDOMINAL PAIN [None]
  - VAGINAL DISCHARGE [None]
